FAERS Safety Report 10519587 (Version 5)
Quarter: 2014Q4

REPORT INFORMATION
  Report Type: Report from Study
  Country: US (occurrence: US)
  Receive Date: 20141015
  Receipt Date: 20141107
  Transmission Date: 20150528
  Serious: Yes (Hospitalization, Other)
  Sender: FDA-Public Use
  Company Number: US-BAYER-2014-140010

PATIENT
  Age: 75 Year
  Sex: Male

DRUGS (2)
  1. STIVARGA [Suspect]
     Active Substance: REGORAFENIB
     Indication: COLON CANCER
     Dosage: 4 TABLETS DAILY (21 DAYS ON AND 7 DAYS OFF)
     Route: 048
     Dates: start: 20140908, end: 201409
  2. STIVARGA [Suspect]
     Active Substance: REGORAFENIB
     Indication: COLON CANCER
     Dosage: 120 MG, QD
     Route: 048
     Dates: start: 20140930

REACTIONS (14)
  - Decreased appetite [None]
  - Hyperkeratosis [None]
  - Erythema [None]
  - Productive cough [None]
  - Dehydration [None]
  - Chest pain [None]
  - Epistaxis [None]
  - Urinary tract infection [None]
  - Pain in extremity [None]
  - Glossodynia [None]
  - Blood pressure increased [None]
  - Fatigue [None]
  - Blister [None]
  - Dysgeusia [None]

NARRATIVE: CASE EVENT DATE: 201409
